FAERS Safety Report 9278873 (Version 1)
Quarter: 2013Q2

REPORT INFORMATION
  Report Type: Spontaneous
  Country: US (occurrence: US)
  Receive Date: 20130508
  Receipt Date: 20130508
  Transmission Date: 20140414
  Serious: Yes (Other)
  Sender: FDA-Public Use
  Company Number: PHHY2013US044161

PATIENT
  Age: 80 Year
  Sex: Female

DRUGS (1)
  1. AMIODARONE [Suspect]
     Indication: ATRIAL FIBRILLATION
     Dosage: 200 MG, DAILY

REACTIONS (4)
  - Hypovolaemia [Unknown]
  - Electrocardiogram U-wave abnormality [Unknown]
  - Electrocardiogram QT prolonged [Unknown]
  - Dizziness [Unknown]
